FAERS Safety Report 15114439 (Version 2)
Quarter: 2018Q3

REPORT INFORMATION
  Report Type: Spontaneous
  Country: CH (occurrence: CH)
  Receive Date: 20180706
  Receipt Date: 20180807
  Transmission Date: 20181010
  Serious: Yes (Hospitalization, Other)
  Sender: FDA-Public Use
  Company Number: CH-009507513-1807CHE001560

PATIENT
  Sex: Female
  Weight: 80 kg

DRUGS (2)
  1. KEYTRUDA [Suspect]
     Active Substance: PEMBROLIZUMAB
     Indication: LUNG CANCER METASTATIC
     Dosage: 200 MG, Q3W
     Route: 042
     Dates: start: 20170628, end: 20180530
  2. KEYTRUDA [Suspect]
     Active Substance: PEMBROLIZUMAB
     Dosage: 200 MG, Q3W
     Route: 042
     Dates: start: 20180711

REACTIONS (1)
  - Arthritis bacterial [Unknown]

NARRATIVE: CASE EVENT DATE: 2017
